FAERS Safety Report 11972021 (Version 1)
Quarter: 2016Q1

REPORT INFORMATION
  Report Type: Spontaneous
  Country: US (occurrence: US)
  Receive Date: 20160128
  Receipt Date: 20160128
  Transmission Date: 20160526
  Serious: No
  Sender: FDA-Public Use
  Company Number: US-PFIZER INC-2016045606

PATIENT
  Sex: Female

DRUGS (1)
  1. LYRICA [Suspect]
     Active Substance: PREGABALIN
     Dosage: 75 MG, 2X/DAY, ONE IN MORNING AND ONE IN EVENING

REACTIONS (5)
  - Somnolence [Unknown]
  - Dry mouth [Unknown]
  - Drug effect incomplete [Unknown]
  - Vision blurred [Unknown]
  - Visual impairment [Unknown]
